FAERS Safety Report 8801307 (Version 1)
Quarter: 2012Q4

REPORT INFORMATION
  Report Type: 
  Country: GB (occurrence: GB)
  Receive Date: 20120921
  Receipt Date: 20120921
  Transmission Date: 20130627
  Serious: Yes (Hospitalization, Other)
  Sender: FDA-Public Use
  Company Number: GB-ROXANE LABORATORIES, INC.-2012-RO-01871RO

PATIENT
  Age: 83 Year
  Sex: Male

DRUGS (8)
  1. METHOTREXATE [Suspect]
     Indication: RHEUMATOID ARTHRITIS
  2. FOLIC ACID [Suspect]
  3. ASPIRIN [Suspect]
  4. ALFUZOSIN [Suspect]
  5. OMEPRAZOLE [Suspect]
  6. OLMESARTAN [Suspect]
  7. LERCANIDIPINE [Suspect]
  8. SIMVASTATIN [Suspect]

REACTIONS (4)
  - Lymphoproliferative disorder [Recovered/Resolved]
  - Anaemia [Recovered/Resolved]
  - Hypercalcaemia [Recovered/Resolved]
  - Multiple fractures [Unknown]
